FAERS Safety Report 15218414 (Version 1)
Quarter: 2018Q3

REPORT INFORMATION
  Report Type: Spontaneous
  Country: US (occurrence: US)
  Receive Date: 20180730
  Receipt Date: 20180730
  Transmission Date: 20181010
  Serious: No
  Sender: FDA-Public Use
  Company Number: US-ASTRAZENECA-2018SE94417

PATIENT
  Sex: Female
  Weight: 82.6 kg

DRUGS (2)
  1. TUDORZA PRESSAIR [Suspect]
     Active Substance: ACLIDINIUM BROMIDE
     Indication: BRONCHOSPASM
     Route: 055
     Dates: start: 20180619
  2. DULERA [Concomitant]
     Active Substance: FORMOTEROL FUMARATE DIHYDRATE\MOMETASONE FUROATE
     Route: 065

REACTIONS (7)
  - Urinary retention [Unknown]
  - Intentional product misuse [Unknown]
  - Dysphonia [Unknown]
  - Bladder pain [Unknown]
  - Eye pain [Unknown]
  - Thinking abnormal [Unknown]
  - Headache [Unknown]
